FAERS Safety Report 14066057 (Version 3)
Quarter: 2017Q4

REPORT INFORMATION
  Report Type: Spontaneous
  Country: IN (occurrence: IN)
  Receive Date: 20171009
  Receipt Date: 20171121
  Transmission Date: 20180321
  Serious: Yes (Death, Other)
  Sender: FDA-Public Use
  Company Number: IN-JNJFOC-20171005597

PATIENT
  Age: 75 Year
  Sex: Male

DRUGS (5)
  1. LEVOFLOX [Concomitant]
     Active Substance: LEVOFLOXACIN
     Route: 048
  2. FLUCONAZOLE. [Concomitant]
     Active Substance: FLUCONAZOLE
     Route: 065
  3. IBRUTINIB [Suspect]
     Active Substance: IBRUTINIB
     Indication: CHRONIC LYMPHOCYTIC LEUKAEMIA
     Route: 048
     Dates: start: 20160801, end: 20170815
  4. IMIPENEM [Concomitant]
     Active Substance: IMIPENEM
     Route: 065
  5. TEICOPLANIN [Concomitant]
     Active Substance: TEICOPLANIN
     Route: 065

REACTIONS (3)
  - Pyrexia [Unknown]
  - Pancytopenia [Unknown]
  - Clear cell renal cell carcinoma [Fatal]

NARRATIVE: CASE EVENT DATE: 2017
